FAERS Safety Report 7258178-0 (Version None)
Quarter: 2011Q1

REPORT INFORMATION
  Report Type: 
  Country: None (occurrence: None)
  Receive Date: 20110129
  Receipt Date: 20100827
  Transmission Date: 20110831
  Serious: No
  Sender: FDA-Public Use
  Company Number: US-ABBOTT-10P-163-0657888-00

PATIENT
  Sex: Female
  Weight: 104.42 kg

DRUGS (6)
  1. HYZAAR [Concomitant]
     Indication: HYPERTENSION
  2. CALCIUM [Concomitant]
     Indication: PRODUCT USED FOR UNKNOWN INDICATION
  3. ZIAC [Concomitant]
     Indication: PRODUCT USED FOR UNKNOWN INDICATION
  4. HUMIRA [Suspect]
     Dosage: 1 IN 2
     Dates: start: 20100701
  5. HUMIRA [Suspect]
     Indication: PSORIASIS
     Dates: start: 20080801, end: 20100701
  6. ASPIRIN [Concomitant]
     Indication: PRODUCT USED FOR UNKNOWN INDICATION

REACTIONS (6)
  - PSORIASIS [None]
  - GINGIVAL INFECTION [None]
  - BLOOD UREA INCREASED [None]
  - ALANINE AMINOTRANSFERASE DECREASED [None]
  - TOOTHACHE [None]
  - GINGIVITIS [None]
